FAERS Safety Report 11519238 (Version 13)
Quarter: 2016Q1

REPORT INFORMATION
  Report Type: Report from Study
  Country: PR (occurrence: PR)
  Receive Date: 20150917
  Receipt Date: 20160331
  Transmission Date: 20160525
  Serious: Yes (Hospitalization, Other)
  Sender: FDA-Public Use
  Company Number: PR-ABBVIE-15K-131-1464171-00

PATIENT
  Age: 14 Year
  Sex: Female

DRUGS (3)
  1. HUMIRA [Suspect]
     Active Substance: ADALIMUMAB
     Indication: CROHN^S DISEASE
     Dosage: INITIAL DOSE
     Route: 058
     Dates: start: 20150826, end: 20150826
  2. HUMIRA [Suspect]
     Active Substance: ADALIMUMAB
     Route: 058
     Dates: start: 2015, end: 2015
  3. HUMIRA [Suspect]
     Active Substance: ADALIMUMAB
     Dosage: SECOND DOSE
     Route: 058
     Dates: start: 20150911, end: 20150911

REACTIONS (18)
  - Antiphospholipid syndrome [Unknown]
  - Cyanosis [Unknown]
  - Thrombosis [Not Recovered/Not Resolved]
  - Shock [Unknown]
  - Necrosis [Not Recovered/Not Resolved]
  - Anaemia [Recovering/Resolving]
  - Renal failure [Not Recovered/Not Resolved]
  - Thrombosis [Unknown]
  - Gastrointestinal disorder [Unknown]
  - Vasculitis [Unknown]
  - Finger amputation [Unknown]
  - Haematuria [Not Recovered/Not Resolved]
  - Vomiting [Not Recovered/Not Resolved]
  - Diarrhoea haemorrhagic [Not Recovered/Not Resolved]
  - Internal haemorrhage [Not Recovered/Not Resolved]
  - Pain in extremity [Unknown]
  - Glomerulonephritis proliferative [Unknown]
  - Tubulointerstitial nephritis [Unknown]

NARRATIVE: CASE EVENT DATE: 2015
